FAERS Safety Report 5527888-5 (Version None)
Quarter: 2007Q4

REPORT INFORMATION
  Report Type: 
  Country: None (occurrence: None)
  Receive Date: 20071123
  Receipt Date: 20071107
  Transmission Date: 20080405
  Serious: Yes (Hospitalization, Congenital Anomaly, Other)
  Sender: FDA-Public Use
  Company Number: 190012L07JPN

PATIENT
  Sex: Female

DRUGS (2)
  1. MENOTROPINS [Suspect]
  2. CHORIONIC GONADOTROPIN [Suspect]

REACTIONS (10)
  - ARTHROPATHY [None]
  - CONGENITAL HYDROCEPHALUS [None]
  - DRUG EXPOSURE DURING PREGNANCY [None]
  - DUODENAL ATRESIA [None]
  - INTESTINAL MALROTATION [None]
  - INTRAVENTRICULAR HAEMORRHAGE NEONATAL [None]
  - OESOPHAGEAL ATRESIA [None]
  - PATENT DUCTUS ARTERIOSUS [None]
  - PREMATURE BABY [None]
  - PYLORIC STENOSIS [None]
